FAERS Safety Report 7299244-3 (Version None)
Quarter: 2011Q1

REPORT INFORMATION
  Report Type: 
  Country: None (occurrence: None)
  Receive Date: 20110217
  Receipt Date: 20110210
  Transmission Date: 20110831
  Serious: Yes (Hospitalization)
  Sender: FDA-Public Use
  Company Number: US-MERCK-1010USA02481

PATIENT
  Age: 61 Year
  Sex: Female

DRUGS (6)
  1. FOSAMAX PLUS D [Suspect]
     Route: 048
     Dates: start: 20030101, end: 20070101
  2. CALCIUM (UNSPECIFIED) [Concomitant]
     Route: 065
  3. MULTIVITAMIN [Concomitant]
     Route: 065
  4. FOSAMAX [Suspect]
     Indication: OSTEOPENIA
     Route: 048
     Dates: start: 20030101, end: 20080101
  5. FOSAMAX [Suspect]
     Route: 048
     Dates: start: 20080211, end: 20081001
  6. VITAMINS (UNSPECIFIED) [Concomitant]
     Route: 065

REACTIONS (4)
  - FEMUR FRACTURE [None]
  - HIGH TURNOVER OSTEOPATHY [None]
  - VULVOVAGINAL DRYNESS [None]
  - BREAST DISORDER [None]
